FAERS Safety Report 25910422 (Version 3)
Quarter: 2025Q4

REPORT INFORMATION
  Report Type: Report from Study
  Country: US (occurrence: US)
  Receive Date: 20251012
  Receipt Date: 20251105
  Transmission Date: 20260118
  Serious: Yes (Other)
  Sender: ABBVIE
  Company Number: US-ABBVIE-6495913

PATIENT
  Age: 65 Year
  Sex: Male

DRUGS (1)
  1. CREON [Suspect]
     Active Substance: PANCRELIPASE AMYLASE\PANCRELIPASE LIPASE\PANCRELIPASE PROTEASE
     Indication: Product used for unknown indication
     Route: 048
     Dates: start: 20250419

REACTIONS (7)
  - Pancreatic carcinoma [Not Recovered/Not Resolved]
  - Diarrhoea [Recovering/Resolving]
  - Pancreatitis [Not Recovered/Not Resolved]
  - Pancreatic failure [Unknown]
  - Soft tissue sarcoma [Unknown]
  - Contrast media allergy [Unknown]
  - Hepatocellular carcinoma [Unknown]

NARRATIVE: CASE EVENT DATE: 20250101
